FAERS Safety Report 10530640 (Version 5)
Quarter: 2015Q2

REPORT INFORMATION
  Report Type: Spontaneous
  Country: US (occurrence: US)
  Receive Date: 20141021
  Receipt Date: 20150626
  Transmission Date: 20150821
  Serious: Yes (Other)
  Sender: FDA-Public Use
  Company Number: US-UCBSA-2014015142

PATIENT
  Age: 38 Year
  Sex: Female
  Weight: 71.66 kg

DRUGS (3)
  1. TRAMADOL [Concomitant]
     Active Substance: TRAMADOL
     Indication: PAIN
     Dosage: 1-2 TABS, AS NEEDED (PRN)
  2. CIMZIA [Suspect]
     Active Substance: CERTOLIZUMAB PEGOL
     Indication: CROHN^S DISEASE
     Dosage: 400 MG, MONTHLY (QM)
     Route: 058
     Dates: start: 20120516
  3. CIMZIA [Suspect]
     Active Substance: CERTOLIZUMAB PEGOL
     Dosage: 200 MG, EV 2 WEEKS(QOW) EXPIRATION DATE:MAR-2017
     Route: 058

REACTIONS (9)
  - Red blood cell count increased [Unknown]
  - Drug ineffective [Unknown]
  - Urinary tract infection [Recovered/Resolved]
  - Ear infection [Not Recovered/Not Resolved]
  - Vaginal haemorrhage [Recovered/Resolved]
  - Benign neoplasm of thyroid gland [Not Recovered/Not Resolved]
  - Cellulitis [Recovered/Resolved]
  - White blood cell count increased [Recovered/Resolved]
  - Off label use [Unknown]

NARRATIVE: CASE EVENT DATE: 201205
